FAERS Safety Report 8419166 (Version 4)
Quarter: 2012Q4

REPORT INFORMATION
  Report Type: 
  Country: CH (occurrence: CH)
  Receive Date: 20120221
  Receipt Date: 20121217
  Transmission Date: 20130627
  Serious: Yes (Death, Other)
  Sender: FDA-Public Use
  Company Number: CH-ABBOTT-12P-151-0903965-00

PATIENT
  Age: 78 Year
  Sex: Male
  Weight: 77 kg

DRUGS (11)
  1. HUMIRA 40 MG/0.8 ML PEN [Suspect]
     Indication: RHEUMATOID ARTHRITIS
     Dates: start: 20110722, end: 20120116
  2. HUMIRA 40 MG/0.8 ML PEN [Suspect]
     Dates: start: 20120116, end: 20120116
  3. HUMIRA 40 MG/0.8 ML PEN [Suspect]
     Dates: start: 20110720, end: 20120116
  4. DAFALGAN [Suspect]
     Indication: PRODUCT USED FOR UNKNOWN INDICATION
     Dosage: On demand, maximum 3gr per day
     Dates: start: 2006
  5. OMEPRAZOLE [Suspect]
     Indication: PRODUCT USED FOR UNKNOWN INDICATION
     Dosage: On demand
     Dates: start: 2010
  6. MICARDIS PLUS [Concomitant]
     Indication: PRODUCT USED FOR UNKNOWN INDICATION
     Dosage: 1-0-1
     Dates: start: 20100615
  7. ZANIDIP [Concomitant]
     Indication: PRODUCT USED FOR UNKNOWN INDICATION
     Dosage: 1-0-0
     Dates: start: 20100319
  8. VITAMINE D3 [Concomitant]
     Indication: PRODUCT USED FOR UNKNOWN INDICATION
     Route: 030
     Dates: start: 20110907
  9. OMEPRAZOL [Concomitant]
     Indication: PRODUCT USED FOR UNKNOWN INDICATION
     Dosage: 2-0-2
     Dates: start: 20101002
  10. PARACETAMOL [Concomitant]
     Indication: PRODUCT USED FOR UNKNOWN INDICATION
     Dosage: Max 6 per day, as needed
     Dates: start: 20101105
  11. MICARDIS [Concomitant]
     Indication: PRODUCT USED FOR UNKNOWN INDICATION

REACTIONS (9)
  - Renal failure chronic [Not Recovered/Not Resolved]
  - Proteinuria [Unknown]
  - Blood creatinine increased [Unknown]
  - Renal atrophy [Unknown]
  - Nephritis [Not Recovered/Not Resolved]
  - Renal failure [Not Recovered/Not Resolved]
  - Renal failure [Fatal]
  - Cardiac failure [Fatal]
  - Vasculitis [Fatal]
